FAERS Safety Report 4336469-0 (Version None)
Quarter: 2004Q2

REPORT INFORMATION
  Report Type: 
  Country: None (occurrence: None)
  Receive Date: 20040412
  Receipt Date: 20040405
  Transmission Date: 20050107
  Serious: Yes (Other)
  Sender: FDA-Public Use
  Company Number: BW-BRISTOL-MYERS SQUIBB COMPANY-12551453

PATIENT
  Age: 36 Year
  Sex: Female

DRUGS (3)
  1. EFAVIRENZ [Suspect]
     Indication: HIV INFECTION
     Dates: start: 20031124
  2. STAVUDINE [Suspect]
     Indication: HIV INFECTION
     Dates: start: 20031124
  3. LAMIVUDINE [Suspect]
     Indication: HIV INFECTION
     Dates: start: 20031124

REACTIONS (1)
  - NEUTROPENIA [None]
